FAERS Safety Report 8029497-5 (Version None)
Quarter: 2012Q1

REPORT INFORMATION
  Report Type: 
  Country: None (occurrence: None)
  Receive Date: 20120109
  Receipt Date: 20111230
  Transmission Date: 20120608
  Serious: Yes (Death, Hospitalization, Other)
  Sender: FDA-Public Use
  Company Number: US-BIOGENIDEC-2011BI046701

PATIENT
  Age: 47 Year
  Sex: Female
  Weight: 85 kg

DRUGS (8)
  1. DULCOLAX [Concomitant]
     Indication: CONSTIPATION
  2. TYSABRI [Suspect]
     Indication: MULTIPLE SCLEROSIS
     Route: 042
     Dates: start: 20090407, end: 20111011
  3. TYSABRI [Suspect]
     Route: 042
     Dates: start: 20070618, end: 20080107
  4. DILAUDID [Concomitant]
     Indication: PRODUCT USED FOR UNKNOWN INDICATION
  5. NALOXONE [Concomitant]
     Indication: PRODUCT USED FOR UNKNOWN INDICATION
  6. ACETAMINOPHEN [Concomitant]
     Indication: PRODUCT USED FOR UNKNOWN INDICATION
  7. AVONEX [Concomitant]
     Indication: MULTIPLE SCLEROSIS
     Route: 030
     Dates: start: 20030121
  8. HYDROMORPHONE HCL [Concomitant]
     Indication: PAIN

REACTIONS (7)
  - CEREBROVASCULAR ACCIDENT [None]
  - STOMATITIS [None]
  - PANCREATIC CARCINOMA METASTATIC [None]
  - TROUSSEAU'S SYNDROME [None]
  - DEHYDRATION [None]
  - HEPATIC NEOPLASM MALIGNANT [None]
  - THROMBOPHLEBITIS SUPERFICIAL [None]
